FAERS Safety Report 15900717 (Version 1)
Quarter: 2019Q1

REPORT INFORMATION
  Report Type: Spontaneous
  Country: US (occurrence: US)
  Receive Date: 20190201
  Receipt Date: 20190201
  Transmission Date: 20190417
  Serious: Yes (Hospitalization)
  Sender: FDA-Public Use
  Company Number: US-PFIZER INC-2019048990

PATIENT
  Age: 24 Year
  Sex: Male

DRUGS (1)
  1. ZITHROMAX [Suspect]
     Active Substance: AZITHROMYCIN DIHYDRATE
     Indication: PNEUMONIA
     Dosage: UNK

REACTIONS (4)
  - Drug effect incomplete [Unknown]
  - Chronic obstructive pulmonary disease [Unknown]
  - White blood cell disorder [Unknown]
  - Infection [Unknown]
